FAERS Safety Report 5663959-0 (Version None)
Quarter: 2008Q1

REPORT INFORMATION
  Report Type: 
  Country: None (occurrence: None)
  Receive Date: 20080314
  Receipt Date: 20080304
  Transmission Date: 20080703
  Serious: Yes (Other)
  Sender: FDA-Public Use
  Company Number: FR-ABBOTT-08P-056-0438532-00

PATIENT
  Sex: Female

DRUGS (3)
  1. VALPROATE SODIUM [Suspect]
     Indication: EPILEPSY
     Route: 048
     Dates: start: 20080125, end: 20080201
  2. ERGENYL CHRONO [Concomitant]
     Indication: EPILEPSY
     Route: 048
     Dates: end: 20080124
  3. ERGENYL CHRONO [Concomitant]

REACTIONS (3)
  - EPILEPSY [None]
  - MYOCLONIC EPILEPSY [None]
  - THERAPEUTIC RESPONSE UNEXPECTED WITH DRUG SUBSTITUTION [None]
